FAERS Safety Report 15599429 (Version 2)
Quarter: 2018Q4

REPORT INFORMATION
  Report Type: Spontaneous
  Country: US (occurrence: US)
  Receive Date: 20181108
  Receipt Date: 20181221
  Transmission Date: 20190205
  Serious: Yes (Other)
  Sender: FDA-Public Use
  Company Number: US-PFIZER INC-2016540673

PATIENT
  Age: 58 Year
  Sex: Female
  Weight: 55.78 kg

DRUGS (5)
  1. NITROSTAT [Suspect]
     Active Substance: NITROGLYCERIN
     Indication: ANGINA PECTORIS
  2. REPATHA [Concomitant]
     Active Substance: EVOLOCUMAB
     Dosage: UNK
  3. VERAPAMIL [Concomitant]
     Active Substance: VERAPAMIL HYDROCHLORIDE
     Dosage: 2 DF, DAILY
     Route: 048
  4. NITROSTAT [Suspect]
     Active Substance: NITROGLYCERIN
     Indication: ATRIOVENTRICULAR BLOCK
     Dosage: 0.4 MG, AS NEEDED (5-6 TIMES A DAY)
     Route: 060
     Dates: start: 2000
  5. RANEXA [Concomitant]
     Active Substance: RANOLAZINE
     Dosage: 500 MG, 2X/DAY

REACTIONS (1)
  - Myocardial infarction [Unknown]
